FAERS Safety Report 9792905 (Version 2)
Quarter: 2014Q2

REPORT INFORMATION
  Report Type: Spontaneous
  Country: US (occurrence: US)
  Receive Date: 20140102
  Receipt Date: 20140402
  Transmission Date: 20141212
  Serious: No
  Sender: FDA-Public Use
  Company Number: US-SA-2013SA119035

PATIENT
  Age: 50 Year
  Sex: Female

DRUGS (2)
  1. AUBAGIO [Suspect]
     Indication: PRODUCT USED FOR UNKNOWN INDICATION
     Route: 065
     Dates: start: 20130126
  2. TOPAMAX [Concomitant]
     Indication: MIGRAINE
     Route: 048
     Dates: start: 20080601

REACTIONS (1)
  - Alopecia [Recovered/Resolved]
